FAERS Safety Report 20047009 (Version 2)
Quarter: 2021Q4

REPORT INFORMATION
  Report Type: Report from Study
  Country: CO (occurrence: None)
  Receive Date: 20211109
  Receipt Date: 20211221
  Transmission Date: 20220303
  Serious: Yes (Hospitalization)
  Sender: FDA-Public Use
  Company Number: CO-Merck Healthcare KGaA-9277400

PATIENT
  Age: 14 Year
  Sex: Male

DRUGS (2)
  1. SAIZEN [Suspect]
     Active Substance: SOMATROPIN
     Indication: Growth hormone deficiency
     Route: 058
     Dates: start: 20180127, end: 2021
  2. SAIZEN [Suspect]
     Active Substance: SOMATROPIN
     Dosage: DOSAGE RE-INTRODUCED.
     Route: 058
     Dates: start: 2021

REACTIONS (1)
  - Orchidectomy [Recovered/Resolved]

NARRATIVE: CASE EVENT DATE: 20211021
